FAERS Safety Report 6700142-1 (Version None)
Quarter: 2010Q2

REPORT INFORMATION
  Report Type: 
  Country: None (occurrence: None)
  Receive Date: 20100426
  Receipt Date: 20100413
  Transmission Date: 20101027
  Serious: Yes (Hospitalization)
  Sender: FDA-Public Use
  Company Number: 2010AL002172

PATIENT
  Age: 69 Year
  Sex: Female

DRUGS (7)
  1. NIFEDIPINE [Suspect]
  2. PIPERACILLIN W/ [Concomitant]
  3. TAZOBACTAM [Concomitant]
  4. DOXAZOSIN [Concomitant]
  5. IRBESARTAN [Concomitant]
  6. HEPARIN [Concomitant]
  7. . [Concomitant]

REACTIONS (2)
  - ACUTE GENERALISED EXANTHEMATOUS PUSTULOSIS [None]
  - HYPERTENSIVE CRISIS [None]
